FAERS Safety Report 13104681 (Version 4)
Quarter: 2017Q1

REPORT INFORMATION
  Report Type: Report from Study
  Country: BR (occurrence: BR)
  Receive Date: 20170111
  Receipt Date: 20170330
  Transmission Date: 20170428
  Serious: Yes (Other)
  Sender: FDA-Public Use
  Company Number: PHHY2015BR157081

PATIENT
  Age: 69 Year
  Sex: Male
  Weight: 54 kg

DRUGS (10)
  1. VOTRIENT [Suspect]
     Active Substance: PAZOPANIB HYDROCHLORIDE
     Indication: RENAL CANCER METASTATIC
     Dosage: 400 MG, QD
     Route: 048
     Dates: start: 201509, end: 201511
  2. VOTRIENT [Suspect]
     Active Substance: PAZOPANIB HYDROCHLORIDE
     Dosage: 200 MG, QD
     Route: 048
  3. VOTRIENT [Suspect]
     Active Substance: PAZOPANIB HYDROCHLORIDE
     Dosage: 400 MG, BID (2 TABLET OF 200 MG, BID)
     Route: 048
  4. VOTRIENT [Suspect]
     Active Substance: PAZOPANIB HYDROCHLORIDE
     Dosage: 400 MG, QD
     Route: 048
  5. VOTRIENT [Suspect]
     Active Substance: PAZOPANIB HYDROCHLORIDE
     Indication: GASTRIC CANCER
     Dosage: 400 MG, QD
     Route: 048
  6. VOTRIENT [Suspect]
     Active Substance: PAZOPANIB HYDROCHLORIDE
     Indication: LUNG NEOPLASM MALIGNANT
     Dosage: 400 MG, BID
     Route: 048
  7. FENOFIBRATE. [Concomitant]
     Active Substance: FENOFIBRATE
     Indication: PRODUCT USED FOR UNKNOWN INDICATION
     Dosage: 30 MG, UNK
     Route: 065
  8. VOTRIENT [Suspect]
     Active Substance: PAZOPANIB HYDROCHLORIDE
     Dosage: 200 MG, BID (ONE IN MORNING AND ONE IN NIGHT)
     Route: 048
  9. VOTRIENT [Suspect]
     Active Substance: PAZOPANIB HYDROCHLORIDE
     Dosage: 200 MG, QD
     Route: 048
  10. FLURAZEPAM [Concomitant]
     Active Substance: FLURAZEPAM\FLURAZEPAM HYDROCHLORIDE
     Indication: INSOMNIA
     Dosage: 1 DF, QD (FROM MORE THAN 20 YEARS AGO)
     Route: 048

REACTIONS (32)
  - Nervousness [Unknown]
  - Hair colour changes [Unknown]
  - Blood creatinine increased [Unknown]
  - Prostatic specific antigen increased [Unknown]
  - Hyperhidrosis [Unknown]
  - Product use issue [Unknown]
  - Pancreatitis acute [Unknown]
  - Vomiting [Unknown]
  - Decreased appetite [Recovering/Resolving]
  - Alopecia [Unknown]
  - Feeling abnormal [Unknown]
  - Abdominal pain upper [Unknown]
  - Weight decreased [Not Recovered/Not Resolved]
  - Amylase increased [Unknown]
  - Lacrimation increased [Unknown]
  - Abdominal discomfort [Unknown]
  - Dyspepsia [Unknown]
  - Hair disorder [Unknown]
  - Blood triglycerides increased [Unknown]
  - Insomnia [Unknown]
  - Aspartate aminotransferase increased [Unknown]
  - Drug intolerance [Unknown]
  - Diarrhoea [Not Recovered/Not Resolved]
  - Gastric cancer recurrent [Unknown]
  - Feeding disorder [Unknown]
  - Alanine aminotransferase increased [Unknown]
  - General physical health deterioration [Unknown]
  - Ageusia [Unknown]
  - Malaise [Unknown]
  - Dizziness [Unknown]
  - Lipase increased [Unknown]
  - Erythema [Unknown]

NARRATIVE: CASE EVENT DATE: 201509
